FAERS Safety Report 22681950 (Version 6)
Quarter: 2023Q4

REPORT INFORMATION
  Report Type: Report from Study
  Country: US (occurrence: US)
  Receive Date: 20230707
  Receipt Date: 20231222
  Transmission Date: 20240110
  Serious: Yes (Hospitalization, Other)
  Sender: FDA-Public Use
  Company Number: US-ABBVIE-5317219

PATIENT
  Age: 71 Year
  Sex: Female
  Weight: 95.254 kg

DRUGS (9)
  1. IMBRUVICA [Suspect]
     Active Substance: IBRUTINIB
     Indication: Splenic marginal zone lymphoma
     Dosage: FORM STRENGTH 140 MILLIGRAMS?DRUG SEND DATE -2022
     Route: 048
     Dates: start: 202206
  2. FLUOXETINE [Concomitant]
     Active Substance: FLUOXETINE HYDROCHLORIDE
     Indication: Depression
  3. AMLODIPINE [Concomitant]
     Active Substance: AMLODIPINE BESYLATE
     Indication: Hypertension
  4. AMLODIPINE [Concomitant]
     Active Substance: AMLODIPINE BESYLATE
     Indication: Hypertension
  5. LOSARTAN [Concomitant]
     Active Substance: LOSARTAN
     Indication: Hypertension
  6. OMEPRAZOLE [Concomitant]
     Active Substance: OMEPRAZOLE
     Indication: Dyspepsia
  7. LORAZEPAM [Concomitant]
     Active Substance: LORAZEPAM
     Indication: Anxiety
     Dosage: 0.5 OR 1.0
  8. PEDIALYTE [Concomitant]
     Active Substance: POTASSIUM CITRATE\SODIUM CITRATE\ZINC
     Indication: Product used for unknown indication
  9. IMBRUVICA [Suspect]
     Active Substance: IBRUTINIB
     Indication: Product used for unknown indication
     Dosage: FORM STRENGTH 140 MILLIGRAM
     Route: 048
     Dates: start: 202207, end: 20230803

REACTIONS (35)
  - Lymphoma [Unknown]
  - Oropharyngeal blistering [Not Recovered/Not Resolved]
  - Skin cancer [Recovered/Resolved]
  - Blister [Not Recovered/Not Resolved]
  - Inflammation [Unknown]
  - Joint swelling [Recovered/Resolved]
  - Arthropod bite [Recovered/Resolved]
  - Blood pressure increased [Recovered/Resolved]
  - Blood pressure increased [Recovered/Resolved]
  - Pruritus [Recovered/Resolved]
  - Limb mass [Recovered/Resolved]
  - Memory impairment [Not Recovered/Not Resolved]
  - Burning sensation [Recovered/Resolved]
  - Skin cancer [Recovering/Resolving]
  - Hepatomegaly [Unknown]
  - Skin discolouration [Recovering/Resolving]
  - Off label use [Not Recovered/Not Resolved]
  - Stress [Not Recovered/Not Resolved]
  - Cataract [Recovered/Resolved]
  - Burning sensation [Not Recovered/Not Resolved]
  - Frustration tolerance decreased [Not Recovered/Not Resolved]
  - Chest pain [Unknown]
  - Oesophageal pain [Not Recovered/Not Resolved]
  - Gastric pH decreased [Not Recovered/Not Resolved]
  - Hot flush [Unknown]
  - Nausea [Not Recovered/Not Resolved]
  - Dyspnoea [Not Recovered/Not Resolved]
  - Abdominal tenderness [Not Recovered/Not Resolved]
  - Oesophageal mucosal blister [Not Recovered/Not Resolved]
  - Multisystem inflammatory syndrome [Unknown]
  - Burning sensation [Not Recovered/Not Resolved]
  - Anxiety [Recovered/Resolved]
  - Cerebral disorder [Unknown]
  - Papule [Recovering/Resolving]
  - Bone marrow disorder [Unknown]

NARRATIVE: CASE EVENT DATE: 20221201
